FAERS Safety Report 23225065 (Version 1)
Quarter: 2023Q4

REPORT INFORMATION
  Report Type: Other
  Country: TW (occurrence: None)
  Receive Date: 20231124
  Receipt Date: 20231124
  Transmission Date: 20240109
  Serious: Yes (Hospitalization, Other)
  Sender: FDA-Public Use
  Company Number: TW-ROCHE-3224539

PATIENT
  Age: 68 Year
  Sex: Female

DRUGS (3)
  1. AVASTIN [Suspect]
     Active Substance: BEVACIZUMAB
     Indication: Ovarian cancer
     Route: 065
  2. AVASTIN [Suspect]
     Active Substance: BEVACIZUMAB
     Route: 065
     Dates: start: 20221203
  3. OLAPARIB [Concomitant]
     Active Substance: OLAPARIB

REACTIONS (5)
  - Epistaxis [Recovered/Resolved]
  - Haemoglobin decreased [Unknown]
  - Loss of consciousness [Unknown]
  - Gastric polyps [Unknown]
  - Gastritis [Unknown]

NARRATIVE: CASE EVENT DATE: 20231110
